FAERS Safety Report 16744090 (Version 2)
Quarter: 2019Q3

REPORT INFORMATION
  Report Type: Report from Study
  Country: KR (occurrence: KR)
  Receive Date: 20190827
  Receipt Date: 20190829
  Transmission Date: 20191005
  Serious: Yes (Death, Hospitalization)
  Sender: FDA-Public Use
  Company Number: KR-BAXTER-2019BAX016610

PATIENT
  Age: 77 Year
  Sex: Male
  Weight: 85 kg

DRUGS (3)
  1. PHYSIONEAL 2.5% [Suspect]
     Active Substance: CALCIUM CHLORIDE\DEXTROSE\MAGNESIUM CHLORIDE\SODIUM CHLORIDE
     Indication: END STAGE RENAL DISEASE
     Route: 033
     Dates: end: 20190820
  2. EXTRANEAL [Suspect]
     Active Substance: CALCIUM CHLORIDE\ICODEXTRIN\MAGNESIUM CHLORIDE\SODIUM CHLORIDE\SODIUM LACTATE
     Indication: END STAGE RENAL DISEASE
     Route: 033
     Dates: end: 20190820
  3. PHYSIONEAL 2.5% [Suspect]
     Active Substance: CALCIUM CHLORIDE\DEXTROSE\MAGNESIUM CHLORIDE\SODIUM CHLORIDE
     Indication: END STAGE RENAL DISEASE
     Route: 033
     Dates: end: 20190820

REACTIONS (3)
  - Cardiac arrest [Fatal]
  - Loss of consciousness [Unknown]
  - Asthenia [Unknown]

NARRATIVE: CASE EVENT DATE: 20190820
